FAERS Safety Report 23801034 (Version 1)
Quarter: 2024Q2

REPORT INFORMATION
  Report Type: Spontaneous
  Country: US (occurrence: US)
  Receive Date: 20240430
  Receipt Date: 20240430
  Transmission Date: 20240715
  Serious: No
  Sender: FDA-Public Use
  Company Number: US-SANDOZ-SDZ2024US043781

PATIENT
  Sex: Male

DRUGS (1)
  1. HYRIMOZ [Suspect]
     Active Substance: ADALIMUMAB-ADAZ
     Indication: Psoriasis
     Dosage: 40 MG N/A DOSE EVERY N/A N/A ONCE EVERY TWO WEEKS
     Route: 058

REACTIONS (4)
  - Pruritus [Unknown]
  - Pain [Unknown]
  - Drug ineffective [Unknown]
  - Product dose omission issue [Unknown]
